FAERS Safety Report 23173669 (Version 1)
Quarter: 2023Q4

REPORT INFORMATION
  Report Type: Report from Study
  Country: CA (occurrence: CA)
  Receive Date: 20231111
  Receipt Date: 20231111
  Transmission Date: 20240109
  Serious: Yes (Other)
  Sender: FDA-Public Use
  Company Number: CA-SANDOZ-SDZ2023CA020060

PATIENT
  Sex: Male

DRUGS (1)
  1. HYRIMOZ [Suspect]
     Active Substance: ADALIMUMAB-ADAZ
     Indication: Crohn^s disease
     Dosage: ALTERNATING BETWEEN 80 MG AND 40 EVERY OTHER WEEK.
     Route: 058
     Dates: start: 20221130

REACTIONS (6)
  - Haematochezia [Unknown]
  - Crohn^s disease [Unknown]
  - Diarrhoea [Unknown]
  - Pain in extremity [Unknown]
  - General physical health deterioration [Unknown]
  - Off label use [Unknown]
